FAERS Safety Report 14788522 (Version 1)
Quarter: 2018Q2

REPORT INFORMATION
  Report Type: Spontaneous
  Country: BR (occurrence: BR)
  Receive Date: 20180423
  Receipt Date: 20180423
  Transmission Date: 20180711
  Serious: Yes (Hospitalization)
  Sender: FDA-Public Use
  Company Number: BR-B.I. PHARMACEUTICALS,INC./RIDGEFIELD-2018-BI-021179

PATIENT
  Age: 68 Year
  Sex: Female
  Weight: 70 kg

DRUGS (12)
  1. GLIFAGE [Concomitant]
     Active Substance: METFORMIN HYDROCHLORIDE
     Indication: DIABETES MELLITUS
     Route: 048
  2. VERAPAMIL [Concomitant]
     Active Substance: VERAPAMIL HYDROCHLORIDE
     Indication: CARDIAC DISORDER
     Route: 048
  3. NEBILET [Concomitant]
     Active Substance: NEBIVOLOL
     Indication: CARDIAC DISORDER
     Route: 048
  4. OMEPRAZOL [Concomitant]
     Active Substance: OMEPRAZOLE
     Indication: GASTROINTESTINAL DISORDER
     Route: 048
  5. SINVASTATINA [Concomitant]
     Active Substance: SIMVASTATIN
     Indication: BLOOD CHOLESTEROL INCREASED
     Route: 048
  6. HIDRION [Concomitant]
     Indication: RENAL DISORDER
     Route: 048
  7. ATENSINA [Suspect]
     Active Substance: CLONIDINE
     Indication: HYPERTENSION
     Route: 048
     Dates: start: 2015, end: 201803
  8. CEBRALAT [Concomitant]
     Active Substance: CILOSTAZOL
     Indication: CARDIAC DISORDER
     Route: 048
  9. AAS INFANTIL [Concomitant]
     Active Substance: ASPIRIN
     Indication: ANTICOAGULANT THERAPY
     Route: 048
  10. HIDRION [Concomitant]
     Route: 048
  11. INSULINA [Concomitant]
     Active Substance: INSULIN NOS
     Indication: DIABETES MELLITUS
     Route: 058
  12. ENALAPRIL [Concomitant]
     Active Substance: ENALAPRIL
     Indication: HYPERTENSION
     Dosage: DOSE 10 MG AND DAILY DOSE 40 MG
     Route: 048

REACTIONS (6)
  - Speech disorder [Recovered/Resolved]
  - Fatigue [Recovered/Resolved]
  - Dyspnoea [Recovered/Resolved]
  - Palpitations [Recovered/Resolved]
  - Blood pressure abnormal [Recovered/Resolved]
  - Decreased activity [Recovered/Resolved]

NARRATIVE: CASE EVENT DATE: 20180331
